FAERS Safety Report 8043746 (Version 3)
Quarter: 2015Q4

REPORT INFORMATION
  Report Type: Spontaneous
  Country: US (occurrence: US)
  Receive Date: 20110719
  Receipt Date: 20151006
  Transmission Date: 20160305
  Serious: Yes (Hospitalization, Congenital Anomaly, Other)
  Sender: FDA-Public Use
  Company Number: US-GLAXOSMITHKLINE-A0930498A

PATIENT
  Age: 0 Day
  Sex: Male

DRUGS (5)
  1. STEROIDS [Concomitant]
     Active Substance: UNSPECIFIED INGREDIENT
     Route: 064
  2. ATARAX [Concomitant]
     Active Substance: HYDROXYZINE\HYDROXYZINE HYDROCHLORIDE
     Route: 064
  3. BENADRYL [Concomitant]
     Active Substance: DIPHENHYDRAMINE HYDROCHLORIDE
     Route: 064
  4. PAXIL [Suspect]
     Active Substance: PAROXETINE HYDROCHLORIDE
     Indication: PRODUCT USED FOR UNKNOWN INDICATION
     Dosage: UNK
     Route: 064
  5. PAROXETINE HYDROCHLORIDE. [Suspect]
     Active Substance: PAROXETINE HYDROCHLORIDE
     Indication: PRODUCT USED FOR UNKNOWN INDICATION
     Dosage: 40 MG, U
     Route: 064

REACTIONS (11)
  - Congenital anomaly [Unknown]
  - Cardiomegaly [Unknown]
  - Pulmonary artery stenosis congenital [Unknown]
  - Congenital aortic stenosis [Unknown]
  - Coronary artery disease [Unknown]
  - Patent ductus arteriosus [Unknown]
  - Myocardial ischaemia [Unknown]
  - Atrioventricular block first degree [Unknown]
  - Foetal exposure during pregnancy [Unknown]
  - Pulmonary oedema [Unknown]
  - Speech disorder [Unknown]

NARRATIVE: CASE EVENT DATE: 19940129
